FAERS Safety Report 25202902 (Version 1)
Quarter: 2025Q2

REPORT INFORMATION
  Report Type: Spontaneous
  Country: CN (occurrence: CN)
  Receive Date: 20250416
  Receipt Date: 20250416
  Transmission Date: 20250716
  Serious: Yes (Hospitalization)
  Sender: COHERUS
  Company Number: CN-SHANGHAI JUNSHI BIOSCIENCES CO., LTD.-CN2025013734

PATIENT

DRUGS (2)
  1. TORIPALIMAB [Suspect]
     Active Substance: TORIPALIMAB
     Indication: Cholangiocarcinoma
     Route: 041
     Dates: start: 20250320
  2. PACLITAXEL [Suspect]
     Active Substance: PACLITAXEL
     Indication: Cholangiocarcinoma
     Route: 041
     Dates: start: 20250320

REACTIONS (1)
  - Myelosuppression [Not Recovered/Not Resolved]

NARRATIVE: CASE EVENT DATE: 20250324
